FAERS Safety Report 13148226 (Version 4)
Quarter: 2019Q1

REPORT INFORMATION
  Report Type: Report from Study
  Country: US (occurrence: US)
  Receive Date: 20170125
  Receipt Date: 20190124
  Transmission Date: 20190417
  Serious: Yes (Other)
  Sender: FDA-Public Use
  Company Number: PHHY2016US019565

PATIENT
  Age: 54 Year
  Sex: Female

DRUGS (1)
  1. GILENYA [Suspect]
     Active Substance: FINGOLIMOD HYDROCHLORIDE
     Indication: MULTIPLE SCLEROSIS
     Dosage: UNK, QD
     Route: 048

REACTIONS (11)
  - Aspartate aminotransferase increased [Unknown]
  - Depression [Unknown]
  - Gait disturbance [Unknown]
  - Deafness unilateral [Unknown]
  - White blood cell count decreased [Unknown]
  - Pollakiuria [Unknown]
  - Dysaesthesia [Unknown]
  - Skin lesion [Unknown]
  - Alanine aminotransferase increased [Unknown]
  - Cystitis interstitial [Unknown]
  - Muscle spasms [Unknown]

NARRATIVE: CASE EVENT DATE: 20150918
